FAERS Safety Report 10519038 (Version 1)
Quarter: 2014Q4

REPORT INFORMATION
  Report Type: Spontaneous
  Country: US (occurrence: None)
  Receive Date: 20141014
  Receipt Date: 20141014
  Transmission Date: 20150528
  Serious: Yes (Life-Threatening, Hospitalization)
  Sender: FDA-Public Use
  Company Number: None

PATIENT
  Age: 46 Year
  Sex: Male
  Weight: 65.77 kg

DRUGS (2)
  1. TOPIRAMATE. [Suspect]
     Active Substance: TOPIRAMATE
     Indication: INSOMNIA
     Dosage: 2 PILLS TWICE A DAY TWICE DAILY TAKEN BY MOUTH
     Route: 048
     Dates: start: 20140421
  2. TOPIRAMATE. [Suspect]
     Active Substance: TOPIRAMATE
     Indication: HEADACHE
     Dosage: 2 PILLS TWICE A DAY TWICE DAILY TAKEN BY MOUTH
     Route: 048
     Dates: start: 20140421

REACTIONS (6)
  - Gun shot wound [None]
  - Jaw fracture [None]
  - Tongue injury [None]
  - Quality of life decreased [None]
  - Suicide attempt [None]
  - Eye penetration [None]

NARRATIVE: CASE EVENT DATE: 20140410
